FAERS Safety Report 8848643 (Version 2)
Quarter: 2012Q4

REPORT INFORMATION
  Report Type: 
  Country: JP (occurrence: JP)
  Receive Date: 20121018
  Receipt Date: 20121030
  Transmission Date: 20130627
  Serious: Yes (Other)
  Sender: FDA-Public Use
  Company Number: JP-BAXTER-2012BAX020345

PATIENT
  Age: 61 Year
  Sex: Male

DRUGS (6)
  1. ENDOXAN 2000 MG, LYOPHILISAT POUR SOLUTION INJECTABLE [Suspect]
     Indication: MALIGNANT LYMPHOMA
     Dates: start: 200707, end: 200801
  2. RITUXIMAB [Suspect]
     Indication: MALIGNANT LYMPHOMA
     Dates: start: 200707, end: 200801
  3. RITUXIMAB [Suspect]
  4. HYDROXYDAUNORUBICIN [Suspect]
     Indication: MALIGNANT LYMPHOMA
     Dates: start: 200707, end: 200801
  5. VINCRISTINE [Suspect]
     Indication: MALIGNANT LYMPHOMA
     Dates: start: 200707, end: 200801
  6. PREDNISOLONE [Suspect]
     Indication: MALIGNANT LYMPHOMA
     Dates: start: 200707, end: 200801

REACTIONS (1)
  - Gastric cancer [Recovered/Resolved]
